FAERS Safety Report 22104662 (Version 2)
Quarter: 2023Q1

REPORT INFORMATION
  Report Type: Spontaneous
  Country: US (occurrence: None)
  Receive Date: 20230316
  Receipt Date: 20230320
  Transmission Date: 20230417
  Serious: No
  Sender: FDA-Public Use
  Company Number: 2023A027046

PATIENT
  Age: 63 Year
  Sex: Female
  Weight: 112.9 kg

DRUGS (28)
  1. TEZSPIRE [Suspect]
     Active Substance: TEZEPELUMAB-EKKO
     Indication: Asthma
     Route: 058
     Dates: start: 20221108
  2. PULMICORT TURBUHALER [Suspect]
     Active Substance: BUDESONIDE
     Dosage: TAKE 2 ML BY NEBULIZATION 2 TIMES DAILY
     Route: 055
  3. SINGULAIR [Concomitant]
     Active Substance: MONTELUKAST SODIUM
     Route: 048
  4. ALBUTEROL\IPRATROPIUM BROMIDE [Concomitant]
     Active Substance: ALBUTEROL\IPRATROPIUM BROMIDE
     Indication: Wheezing
     Dosage: TAKE 3 ML BY NEBULIZATION EVERY 6 HOURS AS NEEDED
  5. ALBUTEROL\IPRATROPIUM BROMIDE [Concomitant]
     Active Substance: ALBUTEROL\IPRATROPIUM BROMIDE
     Indication: Dyspnoea
     Dosage: TAKE 3 ML BY NEBULIZATION EVERY 6 HOURS AS NEEDED
  6. OZEMPIC [Concomitant]
     Active Substance: SEMAGLUTIDE
  7. LEVAQUIN [Concomitant]
     Active Substance: LEVOFLOXACIN
     Route: 048
  8. GLUCOPHAGE [Concomitant]
     Active Substance: METFORMIN HYDROCHLORIDE
     Route: 048
  9. ULTRAM [Concomitant]
     Active Substance: TRAMADOL HYDROCHLORIDE
     Route: 048
  10. MYCOSTATIN [Concomitant]
     Active Substance: NYSTATIN
  11. DIFLUCAN [Concomitant]
     Active Substance: FLUCONAZOLE
  12. ANORO ELLIPTA [Concomitant]
     Active Substance: UMECLIDINIUM BROMIDE\VILANTEROL TRIFENATATE
     Dosage: UMECLIDINIUM-VILANTEROL INHALER 62.5 MCG-25 MCG PER ACTUATION ACTIVE
  13. VITAMIN D3 [Concomitant]
     Active Substance: CHOLECALCIFEROL
     Dosage: CHOLECALCIFEROL ORAL TAKE 1 TABLET EVERY DAY BY ORAL ROUTE, ACTIVE
     Route: 048
  14. DITROPAN-XL [Concomitant]
     Dosage: OXYBUTYNIN CHLORIDE ER 10 MG, TABLET EXTENDED RELEASE 24 HR TAKE 1 TABLET BY MOUTH EVERY DAY AS D...
     Route: 048
  15. EFUDEX [Concomitant]
     Active Substance: FLUOROURACIL
     Dosage: AS NEEDED
  16. APRESOLINE HYDROCHLORIDE [Concomitant]
     Active Substance: HYDRALAZINE HYDROCHLORIDE
  17. ARMOUR THYROID [Concomitant]
     Active Substance: THYROID, PORCINE
  18. ASPIRIN [Concomitant]
     Active Substance: ASPIRIN
     Route: 048
  19. TRUE METRIX GLUCOSE TEST STRIP [Concomitant]
     Dosage: CHECK FASTING GLUCOSE LEVELS EVERY AM
  20. PROVENTIL [Concomitant]
     Active Substance: ALBUTEROL
     Indication: Wheezing
     Dosage: TAKE 3 ML BY NEBULIZATION EVERY 6 HOURS AS NEEDED
  21. PROVENTIL [Concomitant]
     Active Substance: ALBUTEROL
     Indication: Dyspnoea
     Dosage: TAKE 3 ML BY NEBULIZATION EVERY 6 HOURS AS NEEDED
  22. OXYGEN ORDER [Concomitant]
     Indication: Asthma
     Dosage: 1. O2 AT 2LPM CONTINOUS 2. PLEASE PROVIDE PORTABLE CONCENTRATOR OR EQUIVALENT, QUALIFIED ON 6 MIN...
  23. OXYGEN ORDER [Concomitant]
     Indication: Dyspnoea
     Dosage: 1. O2 AT 2LPM CONTINOUS 2. PLEASE PROVIDE PORTABLE CONCENTRATOR OR EQUIVALENT, QUALIFIED ON 6 MIN...
  24. PROAIR HFA [Concomitant]
     Active Substance: ALBUTEROL SULFATE
     Dosage: VENTOLIN HFA 90 MCG PER ACTUATION AEROSOL INHALER INHALE 2 PUFFS EVERY DAY BY INHALATION ROUTE AS...
     Route: 055
  25. NORVASC [Concomitant]
     Active Substance: AMLODIPINE BESYLATE
  26. FLONASE [Concomitant]
     Active Substance: FLUTICASONE PROPIONATE
     Dosage: AS NEEDED
  27. LASIX [Concomitant]
     Active Substance: FUROSEMIDE
     Route: 048
  28. KLOR-CON [Concomitant]
     Active Substance: POTASSIUM CHLORIDE
     Dosage: KLOR-CON 8 MEQ TABLET, EXTENDED RELEASE TAKE 1 TABLET EVERY DAY BY ORAL ROUTE
     Route: 048

REACTIONS (4)
  - Arthritis [Unknown]
  - Headache [Unknown]
  - Musculoskeletal stiffness [Unknown]
  - Arthralgia [Unknown]

NARRATIVE: CASE EVENT DATE: 20230127
